FAERS Safety Report 13122362 (Version 3)
Quarter: 2017Q2

REPORT INFORMATION
  Report Type: Spontaneous
  Country: US (occurrence: US)
  Receive Date: 20170117
  Receipt Date: 20170519
  Transmission Date: 20170830
  Serious: No
  Sender: FDA-Public Use
  Company Number: US-TEVA-729215ACC

PATIENT
  Sex: Female

DRUGS (3)
  1. COPAXONE [Suspect]
     Active Substance: GLATIRAMER ACETATE
     Route: 058
     Dates: start: 20161201
  2. COPAXONE [Suspect]
     Active Substance: GLATIRAMER ACETATE
     Indication: MULTIPLE SCLEROSIS
     Route: 058
     Dates: start: 20160512
  3. SYNVISC-ONE [Concomitant]
     Active Substance: HYALURONATE SODIUM

REACTIONS (3)
  - Injection site pain [Not Recovered/Not Resolved]
  - Chills [Unknown]
  - Fatigue [Not Recovered/Not Resolved]
